FAERS Safety Report 4482724-3 (Version None)
Quarter: 2004Q3

REPORT INFORMATION
  Report Type: 
  Country: None (occurrence: None)
  Receive Date: 20040921
  Receipt Date: 20040625
  Transmission Date: 20050211
  Serious: Yes (Hospitalization)
  Sender: FDA-Public Use
  Company Number: 163-20785-04070011(0)

PATIENT
  Age: 67 Year
  Sex: Male
  Weight: 83.9154 kg

DRUGS (5)
  1. THALOMID [Suspect]
     Indication: B-CELL LYMPHOMA
     Dosage: 200 MG, QHS, ORAL
     Route: 048
     Dates: start: 20040602
  2. THALOMID [Suspect]
     Indication: MANTLE CELL LYMPHOMA
     Dosage: 200 MG, QHS, ORAL
     Route: 048
     Dates: start: 20040602
  3. PRILOSEC [Concomitant]
  4. BABY ASPIRIN (ACETYLSALICYIC ACID) [Concomitant]
  5. MULTIVITAMIN [Concomitant]

REACTIONS (3)
  - ABDOMINAL DISTENSION [None]
  - ABDOMINAL PAIN UPPER [None]
  - CONSTIPATION [None]
